FAERS Safety Report 17686497 (Version 1)
Quarter: 2020Q2

REPORT INFORMATION
  Report Type: Spontaneous
  Country: CA (occurrence: CA)
  Receive Date: 20200420
  Receipt Date: 20200420
  Transmission Date: 20200714
  Serious: Yes (Other)
  Sender: FDA-Public Use
  Company Number: CA-AMGEN-CANSP2020061753

PATIENT
  Age: 62 Year
  Sex: Female

DRUGS (9)
  1. FLUOXETINE [Concomitant]
     Active Substance: FLUOXETINE HYDROCHLORIDE
  2. ITRACONAZOLE. [Concomitant]
     Active Substance: ITRACONAZOLE
  3. TADALAFIL. [Concomitant]
     Active Substance: TADALAFIL
  4. PROLIA [Suspect]
     Active Substance: DENOSUMAB
     Indication: OSTEOPOROSIS
     Dosage: 60 MILLIGRAM, Q6MO
     Route: 058
  5. FOLIC ACID. [Concomitant]
     Active Substance: FOLIC ACID
     Dosage: 5 MILLIGRAM, QD
     Route: 048
  6. TYLENOL ARTHRITIS PAIN [Concomitant]
     Active Substance: ACETAMINOPHEN
     Dosage: UNK UNK, AS NECESSARY
  7. HYDROXYCHLOROQUINE [Concomitant]
     Active Substance: HYDROXYCHLOROQUINE
     Dosage: 200 MILLIGRAM, QD
     Route: 048
  8. NIFEDIPINE XL [Concomitant]
     Active Substance: NIFEDIPINE
     Dosage: 30 MILLIGRAM, QD
  9. METHOTREXATE. [Concomitant]
     Active Substance: METHOTREXATE
     Dosage: 20 MILLIGRAM, QWK
     Route: 058

REACTIONS (17)
  - Hip arthroplasty [Unknown]
  - Inflammatory bowel disease [Unknown]
  - Rheumatoid arthritis [Recovering/Resolving]
  - Hypergammaglobulinaemia benign monoclonal [Unknown]
  - Ileostomy [Unknown]
  - Knee arthroplasty [Unknown]
  - Raynaud^s phenomenon [Not Recovered/Not Resolved]
  - Scoliosis [Unknown]
  - Osteonecrosis [Unknown]
  - Onychomycosis [Unknown]
  - Depression [Unknown]
  - Osteonecrosis of jaw [Not Recovered/Not Resolved]
  - Abscess jaw [Not Recovered/Not Resolved]
  - Intervertebral disc degeneration [Unknown]
  - Arthropathy [Unknown]
  - Insomnia [Unknown]
  - Arthritis [Recovering/Resolving]

NARRATIVE: CASE EVENT DATE: 201801
